FAERS Safety Report 7434905-4 (Version None)
Quarter: 2011Q2

REPORT INFORMATION
  Report Type: 
  Country: None (occurrence: None)
  Receive Date: 20110418
  Receipt Date: 20110406
  Transmission Date: 20111010
  Serious: Yes (Hospitalization)
  Sender: FDA-Public Use
  Company Number: 003576

PATIENT
  Sex: Female

DRUGS (19)
  1. METHOTREXATE [Concomitant]
  2. VALPROATE SODIUM [Concomitant]
  3. BETAMETHASONE [Concomitant]
  4. MOSAPRIDE [Concomitant]
  5. FOLIC ACID [Concomitant]
  6. PREDNISOLONE [Concomitant]
  7. KETOPROFEN [Concomitant]
  8. CANDESARTAN CILEXETIL [Concomitant]
  9. SCOPOLAMINE [Concomitant]
  10. TIQUIZIUM BROMIDE [Concomitant]
  11. CIMZIA [Suspect]
     Indication: RHEUMATOID ARTHRITIS
     Dosage: SUBCUTANEOUS
     Route: 058
     Dates: start: 20100722, end: 20100101
  12. CIMZIA [Suspect]
     Indication: RHEUMATOID ARTHRITIS
     Dosage: SUBCUTANEOUS
     Route: 058
     Dates: start: 20091001, end: 20100527
  13. LOXOPROFEN SODIUM [Concomitant]
  14. DICLOFENAC [Concomitant]
  15. REBAMIPIDE [Concomitant]
  16. CELECOXIB [Concomitant]
  17. ISONIAZID [Concomitant]
  18. RABEPRAZOLE SODIUM [Concomitant]
  19. CANDESARTAN CILEXETIL [Concomitant]

REACTIONS (7)
  - CONTUSION [None]
  - FALL [None]
  - INTRA-CEREBRAL ANEURYSM OPERATION [None]
  - GAIT DISTURBANCE [None]
  - MENINGIOMA SURGERY [None]
  - TUMOUR NECROSIS [None]
  - BACK PAIN [None]
